FAERS Safety Report 21438483 (Version 6)
Quarter: 2023Q1

REPORT INFORMATION
  Report Type: Spontaneous
  Country: DE (occurrence: DE)
  Receive Date: 20221011
  Receipt Date: 20230124
  Transmission Date: 20230417
  Serious: Yes (Other)
  Sender: FDA-Public Use
  Company Number: None

PATIENT
  Age: 29 Year
  Sex: Male

DRUGS (24)
  1. OXYCODONE [Suspect]
     Active Substance: OXYCODONE
     Indication: Analgesic therapy
     Dosage: ORAL OPIOID THERAPY WITH PROLONGED-RELEASE OXYCODONE (30-30-40 MG)
     Route: 048
  2. OXYCODONE [Suspect]
     Active Substance: OXYCODONE
     Dosage: 100 MG (EVERY 8 HOURS)
     Route: 048
  3. OXYCODONE [Suspect]
     Active Substance: OXYCODONE
     Dosage: UNK
     Route: 048
  4. OXYCODONE [Suspect]
     Active Substance: OXYCODONE
     Dosage: UNK, 30-30-40 MG
     Route: 048
  5. HYDROMORPHONE [Suspect]
     Active Substance: HYDROMORPHONE
     Indication: Pain
     Dosage: 16 MILLIGRAM, QD
     Route: 065
     Dates: start: 2017
  6. LENALIDOMIDE [Suspect]
     Active Substance: LENALIDOMIDE
     Indication: Immunomodulatory therapy
     Dosage: UNK
     Route: 065
     Dates: start: 2021
  7. LENALIDOMIDE [Suspect]
     Active Substance: LENALIDOMIDE
     Dosage: 300 MILLIGRAM, QD
     Route: 065
  8. LENALIDOMIDE [Suspect]
     Active Substance: LENALIDOMIDE
     Dosage: UNK DOSE DECREASED
     Route: 065
  9. ZOLEDRONIC ACID [Suspect]
     Active Substance: ZOLEDRONIC ACID
     Indication: Pain
     Dosage: UNK EVERY FOUR WEEKS
     Route: 042
     Dates: start: 2021
  10. ZOLEDRONIC ACID [Suspect]
     Active Substance: ZOLEDRONIC ACID
     Indication: Analgesic therapy
  11. PREGABALIN [Suspect]
     Active Substance: PREGABALIN
     Indication: Pain
     Dosage: UNK UNK, TID 50-50-150  MG
     Route: 065
  12. PREGABALIN [Suspect]
     Active Substance: PREGABALIN
     Indication: Analgesic therapy
     Dosage: 150 MILLIGRAM, QD (150 MG IN THE MORNING AND IN THE EVENING)
     Route: 065
     Dates: start: 2019
  13. PREGABALIN [Suspect]
     Active Substance: PREGABALIN
     Dosage: UNK, TID (50-50-150 MG PREGABALIN)
     Route: 065
     Dates: end: 2019
  14. PREGABALIN [Suspect]
     Active Substance: PREGABALIN
     Dosage: 300 MILLIGRAM, QD
     Route: 065
  15. PREGABALIN [Suspect]
     Active Substance: PREGABALIN
     Dosage: UNK DOSE DECREASED
     Route: 065
  16. AMITRIPTYLINE [Suspect]
     Active Substance: AMITRIPTYLINE
     Indication: Pain
     Dosage: 25 MILLIGRAM, QD (AT NIGHT)
     Route: 065
  17. MORPHINE [Suspect]
     Active Substance: MORPHINE
     Indication: Pain
     Dosage: 10 MILLIGRAM (SIX AND EIGHT TIMES DAILY)
     Route: 048
  18. DICLOFENAC [Suspect]
     Active Substance: DICLOFENAC
     Indication: Bone pain
     Dosage: UNK
     Route: 065
  19. DICLOFENAC [Suspect]
     Active Substance: DICLOFENAC
     Indication: Pain
  20. IBUPROFEN [Suspect]
     Active Substance: IBUPROFEN
     Indication: Bone pain
     Dosage: THERAPY WITH IBUPROFEN IN UNKNOWN DOSAGE WHENEVER AFFLICTED WITH BONE PAIN
     Route: 065
     Dates: start: 2016
  21. HERBALS\TETRAHYDROCANNABINOL UNSPECIFIED [Suspect]
     Active Substance: HERBALS\TETRAHYDROCANNABINOL UNSPECIFIED
     Indication: Pain
     Dosage: UNK 2.5-2.5-7.5 MG
     Route: 048
     Dates: start: 2020
  22. HERBALS\TETRAHYDROCANNABINOL UNSPECIFIED [Suspect]
     Active Substance: HERBALS\TETRAHYDROCANNABINOL UNSPECIFIED
     Dosage: A DAILY DOSE OF 2.5-2.5-7.5 MG THC 10 ADMINISTERED
     Route: 048
     Dates: start: 2022
  23. AMBROXOL [Suspect]
     Active Substance: AMBROXOL
     Indication: Arthralgia
     Dosage: CREAM CONTAINING 20% AMBROXOL (LOCAL THERAPY ON THE SHOULDER)
     Route: 065
     Dates: start: 2019, end: 2019
  24. VITAMIN D [Concomitant]
     Active Substance: VITAMIN D NOS
     Indication: Product used for unknown indication
     Dosage: 2000 INTERNATIONAL UNIT, QD
     Route: 065

REACTIONS (9)
  - Neoplasm progression [Unknown]
  - Metastasis [Unknown]
  - Decreased appetite [Recovered/Resolved]
  - Sleep disorder [Recovered/Resolved]
  - Depression [Recovered/Resolved]
  - Somnolence [Recovered/Resolved]
  - Fatigue [Not Recovered/Not Resolved]
  - Condition aggravated [Recovered/Resolved]
  - Drug ineffective [Unknown]

NARRATIVE: CASE EVENT DATE: 20170101
